FAERS Safety Report 8241109-4 (Version None)
Quarter: 2012Q1

REPORT INFORMATION
  Report Type: 
  Country: None (occurrence: None)
  Receive Date: 20120328
  Receipt Date: 20120323
  Transmission Date: 20120608
  Serious: Yes (Death)
  Sender: FDA-Public Use
  Company Number: JP-GLAXOSMITHKLINE-B0761571A

PATIENT
  Sex: Male

DRUGS (6)
  1. FRAGMIN [Concomitant]
     Indication: PROPHYLAXIS
     Dosage: 5000IU PER DAY
     Route: 042
     Dates: start: 20110929, end: 20111021
  2. OZEX [Concomitant]
     Indication: INFECTION PROPHYLAXIS
     Dosage: 150MG PER DAY
     Route: 048
     Dates: end: 20111016
  3. ZOVIRAX [Concomitant]
     Indication: PROPHYLAXIS
     Route: 048
     Dates: start: 20110929, end: 20111016
  4. OMEPRAZOLE [Concomitant]
     Indication: PROPHYLAXIS AGAINST GASTROINTESTINAL ULCER
     Dosage: 20MG PER DAY
     Route: 048
     Dates: start: 20110821, end: 20111016
  5. ALKERAN [Suspect]
     Indication: ALLOGENIC BONE MARROW TRANSPLANTATION THERAPY
     Dosage: 250MG PER DAY
     Route: 042
     Dates: start: 20111004, end: 20111004
  6. ITRACONAZOLE [Concomitant]
     Indication: INFECTION PROPHYLAXIS
     Dosage: 200MG PER DAY
     Route: 048
     Dates: start: 20110929, end: 20111016

REACTIONS (4)
  - ACUTE GRAFT VERSUS HOST DISEASE [None]
  - SKIN EXFOLIATION [None]
  - GENERALISED ERYTHEMA [None]
  - RASH [None]
